FAERS Safety Report 10286864 (Version 2)
Quarter: 2014Q3

REPORT INFORMATION
  Report Type: Spontaneous
  Country: GB (occurrence: None)
  Receive Date: 20140703
  Receipt Date: 20140714
  Transmission Date: 20150326
  Serious: Yes (Other)
  Sender: FDA-Public Use
  Company Number: AUR-APL-2014-07008

PATIENT
  Sex: Female

DRUGS (1)
  1. ALENDRONIC ACID [Suspect]
     Active Substance: ALENDRONIC ACID
     Indication: OSTEOPOROSIS
     Dosage: ONE TABLET PER WEEK, UNKNOWN
     Dates: start: 201312

REACTIONS (9)
  - Optic neuritis [None]
  - Dizziness [None]
  - Photosensitivity reaction [None]
  - Eye pain [None]
  - Ulcerative keratitis [None]
  - Nervousness [None]
  - Tremor [None]
  - Herpes simplex [None]
  - Tension headache [None]
